FAERS Safety Report 7215061-4 (Version None)
Quarter: 2011Q1

REPORT INFORMATION
  Report Type: 
  Country: None (occurrence: None)
  Receive Date: 20110107
  Receipt Date: 20100719
  Transmission Date: 20110831
  Serious: No
  Sender: FDA-Public Use
  Company Number: A0873296A

PATIENT
  Age: 72 Year
  Sex: Female

DRUGS (5)
  1. YOGURT [Suspect]
  2. MIRALAX [Suspect]
     Indication: CONSTIPATION
     Route: 048
  3. LOVAZA [Suspect]
     Route: 048
  4. FENTANYL [Concomitant]
  5. VICODIN [Concomitant]

REACTIONS (2)
  - NAUSEA [None]
  - VOMITING [None]
